FAERS Safety Report 15758260 (Version 1)
Quarter: 2018Q4

REPORT INFORMATION
  Report Type: Spontaneous
  Country: GB (occurrence: GB)
  Receive Date: 20181225
  Receipt Date: 20181225
  Transmission Date: 20190205
  Serious: Yes (Life-Threatening, Hospitalization, Other)
  Sender: FDA-Public Use
  Company Number: GB-AUROBINDO-AUR-APL-2018-061818

PATIENT
  Age: 29 Year
  Sex: Female

DRUGS (3)
  1. COCODAMOL [Suspect]
     Active Substance: ACETAMINOPHEN\CODEINE PHOSPHATE
     Indication: PELVIC PAIN
     Dosage: UNK
     Route: 065
  2. PARACETAMOL [Suspect]
     Active Substance: ACETAMINOPHEN
     Indication: PELVIC PAIN
     Dosage: UNK
     Route: 065
  3. PARACETAMOL CODEINE [Suspect]
     Active Substance: ACETAMINOPHEN\CODEINE PHOSPHATE
     Indication: PELVIC PAIN
     Dosage: UNK
     Route: 065

REACTIONS (12)
  - Malaise [Unknown]
  - Hepatotoxicity [Recovered/Resolved with Sequelae]
  - Liver disorder [Unknown]
  - Asthenia [Unknown]
  - Consciousness fluctuating [Unknown]
  - Exposure during pregnancy [Unknown]
  - Accidental overdose [Unknown]
  - Feeling guilty [Unknown]
  - Premature labour [Unknown]
  - Asthenopia [Unknown]
  - Fear [Unknown]
  - Depressed level of consciousness [Unknown]
